FAERS Safety Report 21660133 (Version 1)
Quarter: 2022Q4

REPORT INFORMATION
  Report Type: Spontaneous
  Country: CN (occurrence: None)
  Receive Date: 20221130
  Receipt Date: 20221130
  Transmission Date: 20230112
  Serious: Yes (Other)
  Sender: FDA-Public Use
  Company Number: CN-ROCHE-3226896

PATIENT
  Age: 53 Year
  Sex: Male
  Weight: 45 kg

DRUGS (3)
  1. HERCEPTIN [Suspect]
     Active Substance: TRASTUZUMAB
     Indication: Gastric cancer
     Dosage: THREE WEEKS A CYCLE
     Route: 041
     Dates: start: 20221021, end: 20221021
  2. PACLITAXEL [Suspect]
     Active Substance: PACLITAXEL
     Indication: Gastric cancer
     Dosage: THREE WEEKS A CYCLE
     Route: 041
     Dates: start: 20221021, end: 20221021
  3. CISPLATIN [Suspect]
     Active Substance: CISPLATIN
     Indication: Gastric cancer
     Dosage: THREE WEEKS A CYCLE
     Route: 041
     Dates: start: 20221021, end: 20221023

REACTIONS (2)
  - Platelet count decreased [Recovered/Resolved]
  - Myelosuppression [Unknown]

NARRATIVE: CASE EVENT DATE: 20221028
